FAERS Safety Report 6468240-8 (Version None)
Quarter: 2009Q4

REPORT INFORMATION
  Report Type: 
  Country: None (occurrence: None)
  Receive Date: 20091127
  Receipt Date: 20091116
  Transmission Date: 20100525
  Serious: Yes (Hospitalization)
  Sender: FDA-Public Use
  Company Number: 433650

PATIENT
  Age: 14 Year
  Sex: Female

DRUGS (5)
  1. METHOTREXATE [Suspect]
     Indication: BONE SARCOMA
  2. CISPLATIN [Suspect]
     Indication: BONE SARCOMA
  3. DOXORUBICIN HCL [Suspect]
     Indication: BONE SARCOMA
  4. IFOSFAMIDE [Suspect]
     Indication: BONE SARCOMA
  5. (CHEMOTHERAPEUTICS NOS) [Suspect]
     Indication: BONE SARCOMA

REACTIONS (2)
  - FEMORAL NECK FRACTURE [None]
  - OSTEOPOROTIC FRACTURE [None]
